FAERS Safety Report 8054863-1 (Version None)
Quarter: 2012Q1

REPORT INFORMATION
  Report Type: 
  Country: None (occurrence: None)
  Receive Date: 20120112
  Receipt Date: 20120103
  Transmission Date: 20120608
  Serious: Yes (Other)
  Sender: FDA-Public Use
  Company Number: DKLU1075065

PATIENT
  Age: 41 Year
  Sex: Female

DRUGS (8)
  1. MIRENA [Suspect]
     Indication: CONTRACEPTION
     Dosage: INTRA-UTERINE
     Dates: start: 20110506
  2. TRILEPTAL [Suspect]
     Indication: EPILEPSY
     Dosage: ORAL
     Route: 048
  3. LAMOTRIGINE [Suspect]
     Indication: EPILEPSY
     Dosage: ORAL
     Route: 048
  4. ONFI (CLOBAZAM) (CLOBAZAM) [Suspect]
     Indication: EPILEPSY
     Dosage: ORAL
     Route: 048
  5. TOPAMAX [Suspect]
     Indication: EPILEPSY
     Dosage: ORAL
     Route: 048
  6. CHLORDIAZEPOXIDE [Suspect]
     Indication: PRODUCT USED FOR UNKNOWN INDICATION
  7. ALITRETINOIN (ALITRETINOIN) (30 MG) [Suspect]
     Indication: ECZEMA
     Dosage: 30 MG MILLIGRAM(S), 1 IN 1 D, ORAL
     Route: 048
     Dates: start: 20110510
  8. ZOLOFT [Suspect]
     Indication: PRODUCT USED FOR UNKNOWN INDICATION

REACTIONS (5)
  - CONDITION AGGRAVATED [None]
  - DIZZINESS [None]
  - HEADACHE [None]
  - MULTIPLE INJURIES [None]
  - GRAND MAL CONVULSION [None]
